FAERS Safety Report 5500649-9 (Version None)
Quarter: 2007Q4

REPORT INFORMATION
  Report Type: 
  Country: None (occurrence: None)
  Receive Date: 20071029
  Receipt Date: 20071019
  Transmission Date: 20080405
  Serious: Yes (Other)
  Sender: FDA-Public Use
  Company Number: US-AVENTIS-200717356US

PATIENT
  Sex: Male

DRUGS (3)
  1. LANTUS [Suspect]
     Dates: start: 20060101
  2. LIPITOR [Concomitant]
     Dosage: DOSE: UNK
  3. ACTOS [Concomitant]
     Dosage: DOSE: UNK
     Dates: end: 20070101

REACTIONS (13)
  - ASTHENIA [None]
  - BLOOD GLUCOSE DECREASED [None]
  - CARDIAC DISORDER [None]
  - DYSPNOEA [None]
  - DYSSTASIA [None]
  - GAIT DISTURBANCE [None]
  - INJECTION SITE IRRITATION [None]
  - MOBILITY DECREASED [None]
  - MUSCLE TIGHTNESS [None]
  - MYALGIA [None]
  - MYOCARDIAL INFARCTION [None]
  - PAIN [None]
  - WEIGHT INCREASED [None]
